FAERS Safety Report 18072334 (Version 1)
Quarter: 2020Q3

REPORT INFORMATION
  Report Type: Spontaneous
  Country: US (occurrence: US)
  Receive Date: 20200727
  Receipt Date: 20200727
  Transmission Date: 20201103
  Serious: Yes (Life-Threatening, Hospitalization)
  Sender: FDA-Public Use
  Company Number: None

PATIENT
  Age: 67 Year
  Sex: Female
  Weight: 79 kg

DRUGS (1)
  1. SUGAMMADEX (SUGAMMADEX 100MG/ML INJ, 2ML) [Suspect]
     Active Substance: SUGAMMADEX
     Indication: SURGERY
     Dates: start: 20200621, end: 20200621

REACTIONS (1)
  - Anaphylactic reaction [None]

NARRATIVE: CASE EVENT DATE: 20200621
